FAERS Safety Report 19625920 (Version 2)
Quarter: 2021Q3

REPORT INFORMATION
  Report Type: Spontaneous
  Country: US (occurrence: US)
  Receive Date: 20210729
  Receipt Date: 20210831
  Transmission Date: 20211014
  Serious: No
  Sender: FDA-Public Use
  Company Number: US-HETERO-HET2021US01455

PATIENT

DRUGS (1)
  1. MONTELUKAST [Suspect]
     Active Substance: MONTELUKAST SODIUM
     Indication: ASTHMA
     Dosage: 10 MG, Q.H.S.
     Route: 065

REACTIONS (15)
  - Restlessness [Recovered/Resolved]
  - Tremor [Recovered/Resolved]
  - Abdominal pain upper [Recovered/Resolved]
  - Depression [Recovered/Resolved]
  - Dyskinesia [Recovered/Resolved]
  - Rhinorrhoea [Recovered/Resolved]
  - Memory impairment [Recovered/Resolved]
  - Hyperuricaemia [Recovered/Resolved]
  - Disturbance in attention [Recovered/Resolved]
  - Cough [Recovered/Resolved]
  - Diarrhoea [Recovered/Resolved]
  - Sinusitis [Recovered/Resolved]
  - Anxiety [Recovered/Resolved]
  - Initial insomnia [Recovered/Resolved]
  - Headache [Recovered/Resolved]
